FAERS Safety Report 10773158 (Version 2)
Quarter: 2016Q1

REPORT INFORMATION
  Report Type: Other
  Country: US (occurrence: US)
  Receive Date: 20150207
  Receipt Date: 20160219
  Transmission Date: 20160525
  Serious: No
  Sender: FDA-Public Use
  Company Number: US-ACORDA-ACO_107649_2014

PATIENT
  Sex: Female

DRUGS (4)
  1. AMPYRA [Suspect]
     Active Substance: DALFAMPRIDINE
     Indication: PRODUCT USED FOR UNKNOWN INDICATION
     Dosage: UNK
     Route: 065
     Dates: start: 2014, end: 2014
  2. TECFIDERA [Suspect]
     Active Substance: DIMETHYL FUMARATE
     Indication: PRODUCT USED FOR UNKNOWN INDICATION
     Dosage: 240 MG, UNK
     Route: 065
  3. REBIF [Concomitant]
     Active Substance: INTERFERON BETA-1A
     Indication: PRODUCT USED FOR UNKNOWN INDICATION
     Dosage: UNK
     Route: 065
  4. REBIF [Concomitant]
     Active Substance: INTERFERON BETA-1A
     Dosage: UNK
     Route: 065

REACTIONS (9)
  - Memory impairment [Unknown]
  - Abdominal pain upper [Recovered/Resolved]
  - Abdominal discomfort [Recovered/Resolved]
  - Multiple sclerosis relapse [Unknown]
  - Depression [Unknown]
  - Adverse drug reaction [Unknown]
  - Abdominal distension [Unknown]
  - Decreased appetite [Unknown]
  - Insomnia [Unknown]

NARRATIVE: CASE EVENT DATE: 2014
